FAERS Safety Report 25095803 (Version 1)
Quarter: 2025Q1

REPORT INFORMATION
  Report Type: Spontaneous
  Country: US (occurrence: US)
  Receive Date: 20250319
  Receipt Date: 20250319
  Transmission Date: 20250408
  Serious: Yes (Other)
  Sender: JOHNSON AND JOHNSON
  Company Number: US-JNJFOC-20250244805

PATIENT

DRUGS (2)
  1. XARELTO [Suspect]
     Active Substance: RIVAROXABAN
     Indication: Pulmonary embolism
     Route: 048
     Dates: start: 2018
  2. XARELTO [Suspect]
     Active Substance: RIVAROXABAN
     Indication: Thrombosis

REACTIONS (3)
  - High frequency ablation [Unknown]
  - Paraesthesia [Unknown]
  - Hypoaesthesia [Unknown]
